FAERS Safety Report 9172877 (Version 1)
Quarter: 2012Q4

REPORT INFORMATION
  Report Type: 
  Country: UZ (occurrence: UZ)
  Receive Date: 20120911
  Receipt Date: 20120911
  Transmission Date: 20130627
  Serious: Yes (Death)
  Sender: FDA-Public Use
  Company Number: PHHY2009UZ071099

PATIENT
  Sex: Female

DRUGS (1)
  1. GLIVEC [Suspect]
     Dates: start: 20090420

REACTIONS (2)
  - Thrombocytopenia [Fatal]
  - Epistaxis [Fatal]
